FAERS Safety Report 10546657 (Version 4)
Quarter: 2015Q1

REPORT INFORMATION
  Report Type: Spontaneous
  Country: US (occurrence: US)
  Receive Date: 20141027
  Receipt Date: 20150217
  Transmission Date: 20150720
  Serious: No
  Sender: FDA-Public Use
  Company Number: US-PFIZER INC-2014291342

PATIENT
  Age: 65 Year
  Sex: Female
  Weight: 91 kg

DRUGS (9)
  1. CELEBREX [Suspect]
     Active Substance: CELECOXIB
     Indication: FIBROMYALGIA
     Dosage: 200 MG, 2X/DAY
  2. CELEBREX [Suspect]
     Active Substance: CELECOXIB
     Indication: ARTHRITIS
     Dosage: 100 MG, 2X/DAY
  3. CYMBALTA [Concomitant]
     Active Substance: DULOXETINE HYDROCHLORIDE
     Dosage: 60 MG, 1X/DAY
  4. SKELAXIN [Concomitant]
     Active Substance: METAXALONE
     Dosage: 800 MG, 3X/DAY
     Dates: end: 201411
  5. OXYCODONE HYDROCHLORIDE AND ACETAMINOPHEN [Concomitant]
     Active Substance: ACETAMINOPHEN\OXYCODONE HYDROCHLORIDE
     Indication: PAIN
     Dosage: UNK (5/325MG), 4X/DAY AS NEEDED
  6. VICODIN/APAP [Concomitant]
     Dosage: UNK, AS NEEDED
  7. DULOXETINE DR [Concomitant]
     Active Substance: DULOXETINE
     Dosage: 60 MG, UNK
  8. CELEBREX [Suspect]
     Active Substance: CELECOXIB
     Indication: PAIN
     Dosage: 100 MG, 1X/DAY
  9. OMEPRAZOLE. [Concomitant]
     Active Substance: OMEPRAZOLE
     Dosage: 20 MG, UNK

REACTIONS (6)
  - Blood glucose increased [Unknown]
  - High density lipoprotein increased [Not Recovered/Not Resolved]
  - Product use issue [Unknown]
  - Blood triglycerides increased [Not Recovered/Not Resolved]
  - Overweight [Unknown]
  - Blood pressure increased [Not Recovered/Not Resolved]
